FAERS Safety Report 7680164-7 (Version None)
Quarter: 2011Q3

REPORT INFORMATION
  Report Type: 
  Country: None (occurrence: None)
  Receive Date: 20110812
  Receipt Date: 20110810
  Transmission Date: 20111222
  Serious: Yes (Hospitalization)
  Sender: FDA-Public Use
  Company Number: CO-ROCHE-795944

PATIENT
  Sex: Female

DRUGS (1)
  1. CELLCEPT [Suspect]
     Dosage: FREQUENCY: DAILY
     Route: 048
     Dates: start: 20090720

REACTIONS (1)
  - TRANSPLANT REJECTION [None]
